FAERS Safety Report 5910431-6 (Version None)
Quarter: 2008Q4

REPORT INFORMATION
  Report Type: 
  Country: None (occurrence: None)
  Receive Date: 20081006
  Receipt Date: 20081006
  Transmission Date: 20090506
  Serious: Yes (Other)
  Sender: FDA-Public Use
  Company Number: None

PATIENT
  Age: 46 Year
  Sex: Female
  Weight: 91.6266 kg

DRUGS (1)
  1. CEFDINIR [Suspect]
     Indication: SINUSITIS
     Dosage: 1 300 MG CAPSULE TWICE DAILY PO
     Route: 048
     Dates: start: 20080927, end: 20081001

REACTIONS (9)
  - ABDOMINAL PAIN UPPER [None]
  - CHROMATURIA [None]
  - FEELING ABNORMAL [None]
  - HEADACHE [None]
  - NAUSEA [None]
  - OROPHARYNGEAL PAIN [None]
  - PRURITUS [None]
  - RENAL PAIN [None]
  - VULVOVAGINAL MYCOTIC INFECTION [None]
